FAERS Safety Report 8201623-4 (Version None)
Quarter: 2012Q1

REPORT INFORMATION
  Report Type: 
  Country: None (occurrence: None)
  Receive Date: 20120312
  Receipt Date: 20120305
  Transmission Date: 20120608
  Serious: Yes (Hospitalization)
  Sender: FDA-Public Use
  Company Number: JP-FRI-1000023574

PATIENT
  Sex: Male
  Weight: 57 kg

DRUGS (9)
  1. MEMANTINE [Suspect]
     Dosage: 10 MG
     Route: 048
     Dates: start: 20110101, end: 20110101
  2. LIPITOR [Concomitant]
     Indication: HYPERLIPIDAEMIA
     Dosage: 10 MG
     Route: 048
  3. JUVELA [Concomitant]
     Indication: PERIPHERAL VASCULAR DISORDER
     Dosage: 600 MG
     Route: 048
  4. MEMANTINE [Suspect]
     Indication: DEMENTIA ALZHEIMER'S TYPE
     Dosage: 5 MG
     Route: 048
     Dates: start: 20110623, end: 20110101
  5. ARICEPT [Concomitant]
     Dosage: 5 MG
  6. MEMANTINE [Suspect]
     Dosage: 15 MG
     Route: 048
     Dates: start: 20110101, end: 20110714
  7. MEMANTINE [Suspect]
     Dosage: 20 MG
     Route: 048
     Dates: start: 20110715, end: 20110817
  8. MEMANTINE [Suspect]
     Route: 048
     Dates: start: 20110101
  9. METHYCOBAL [Concomitant]
     Indication: NEUROPATHY PERIPHERAL
     Dosage: 1500 MCG
     Route: 048

REACTIONS (3)
  - COORDINATION ABNORMAL [None]
  - MALAISE [None]
  - PYREXIA [None]
